FAERS Safety Report 8757005 (Version 2)
Quarter: 2012Q4

REPORT INFORMATION
  Report Type: 
  Country: US (occurrence: US)
  Receive Date: 20120828
  Receipt Date: 20120828
  Transmission Date: 20130627
  Serious: Yes (Hospitalization, Other)
  Sender: FDA-Public Use
  Company Number: US-009507513-1204USA00038

PATIENT

DRUGS (6)
  1. FOSAMAX [Suspect]
     Indication: OSTEOPOROSIS
     Dosage: 70 mg, UNK
     Route: 048
     Dates: start: 20040131, end: 20080405
  2. FOSAMAX [Suspect]
     Indication: OSTEOPOROSIS
     Dosage: 70 mg, UNK
     Route: 048
     Dates: start: 20080801, end: 20100206
  3. MK-9278 [Concomitant]
  4. CORTICOSTEROIDS (UNSPECIFIED) [Concomitant]
     Dates: start: 1997
  5. PROVENTIL [Concomitant]
     Route: 055
     Dates: start: 200608, end: 201109
  6. HYDROCODONE/APAP [Concomitant]
     Dates: start: 200404, end: 201108

REACTIONS (8)
  - Femur fracture [Unknown]
  - Fracture nonunion [Unknown]
  - Device failure [Unknown]
  - Blood pressure increased [Unknown]
  - Anxiety [None]
  - Irritability [None]
  - Pain [None]
  - Decreased activity [None]
